FAERS Safety Report 5214200-4 (Version None)
Quarter: 2007Q1

REPORT INFORMATION
  Report Type: 
  Country: None (occurrence: None)
  Receive Date: 20070122
  Receipt Date: 20070109
  Transmission Date: 20070707
  Serious: Yes (Other)
  Sender: FDA-Public Use
  Company Number: GB-BRISTOL-MYERS SQUIBB COMPANY-13644356

PATIENT

DRUGS (1)
  1. ERBITUX [Suspect]
     Route: 041

REACTIONS (1)
  - VASCULAR ENCEPHALOPATHY [None]
